FAERS Safety Report 9744084 (Version 1)
Quarter: 2013Q4

REPORT INFORMATION
  Report Type: Spontaneous
  Country: GB (occurrence: GB)
  Receive Date: 20131210
  Receipt Date: 20131210
  Transmission Date: 20140711
  Serious: Yes (Other)
  Sender: FDA-Public Use
  Company Number: GB-GLAXOSMITHKLINE-B0950999A

PATIENT
  Age: 46 Year
  Sex: Female

DRUGS (2)
  1. AVAMYS [Suspect]
     Dosage: 2IUAX PER DAY
     Route: 045
     Dates: start: 20131118, end: 20131120
  2. LEVOTHYROXINE [Concomitant]
     Dosage: 1IUAX PER DAY
     Route: 048

REACTIONS (2)
  - Dizziness [Recovered/Resolved]
  - Anxiety [Recovered/Resolved]
